FAERS Safety Report 6631036-8 (Version None)
Quarter: 2010Q1

REPORT INFORMATION
  Report Type: 
  Country: None (occurrence: None)
  Receive Date: 20100309
  Receipt Date: 20100301
  Transmission Date: 20100710
  Serious: Yes (Hospitalization)
  Sender: FDA-Public Use
  Company Number: CIP10000412

PATIENT
  Age: 72 Year
  Sex: Male

DRUGS (5)
  1. ASACOL HD          (MESALAZINE 800 MG) [Suspect]
     Indication: COLITIS
     Dosage: 800 MG TWICE DIALY, ORAL
     Route: 048
     Dates: start: 20100101
  2. CELEBREX [Concomitant]
  3. NEURONTIN [Concomitant]
  4. CELEBREX [Concomitant]
  5. NEURONTIN [Concomitant]

REACTIONS (1)
  - ATRIAL FIBRILLATION [None]
